FAERS Safety Report 8508022-6 (Version None)
Quarter: 2012Q3

REPORT INFORMATION
  Report Type: 
  Country: None (occurrence: None)
  Receive Date: 20120713
  Receipt Date: 20120706
  Transmission Date: 20120928
  Serious: Yes (Other)
  Sender: FDA-Public Use
  Company Number: PHHY2011CA70851

PATIENT
  Sex: Female

DRUGS (1)
  1. SANDOSTATIN LAR [Suspect]
     Indication: ACROMEGALY
     Dosage: 30 MG, QMO
     Route: 030
     Dates: start: 19980601

REACTIONS (6)
  - MALAISE [None]
  - CONTUSION [None]
  - HEAD INJURY [None]
  - FALL [None]
  - ARTHRALGIA [None]
  - INJECTION SITE MASS [None]
